FAERS Safety Report 8071854 (Version 3)
Quarter: 2012Q4

REPORT INFORMATION
  Report Type: 
  Country: GB (occurrence: GB)
  Receive Date: 20110805
  Receipt Date: 20120924
  Transmission Date: 20130627
  Serious: Yes (Death, Hospitalization)
  Sender: FDA-Public Use
  Company Number: PHFR2011GB04552

PATIENT
  Age: 68 Year
  Sex: Female

DRUGS (11)
  1. DICLOFENAC SODIUM [Suspect]
     Indication: OSTEOARTHRITIS
     Dosage: 50 mg, TID
     Route: 048
     Dates: start: 20080708, end: 20110531
  2. ALENDRONIC ACID [Concomitant]
     Indication: OSTEOARTHRITIS
     Dosage: 70 mg, QW
     Route: 065
     Dates: start: 20091130
  3. ALENDRONIC ACID [Concomitant]
     Indication: OSTEOPENIA
  4. AMITRIPTYLINE [Concomitant]
     Dosage: 10 mg, QD
     Route: 065
     Dates: start: 20050614
  5. CO-CODAMOL [Concomitant]
     Indication: OSTEOARTHRITIS
     Route: 065
     Dates: start: 20060227
  6. CO-CODAMOL [Concomitant]
     Indication: SPINAL OSTEOARTHRITIS
  7. CO-CODAMOL [Concomitant]
     Indication: NEURALGIA
  8. ESTRADIOL [Concomitant]
     Dosage: 25 ug, UNK
     Route: 065
     Dates: start: 20010927
  9. GABAPENTIN [Concomitant]
     Indication: NEURALGIA
     Dosage: 300 mg, 6times a day
     Dates: start: 20060126
  10. TRAMADOL [Concomitant]
     Indication: ESSENTIAL HYPERTENSION
     Dosage: 50 mg, 6 times a day
     Route: 065
     Dates: start: 20060320
  11. TRIAMCINOLONE ACETONIDE [Concomitant]
     Indication: OSTEOARTHRITIS
     Route: 030
     Dates: start: 20090914, end: 20110505

REACTIONS (14)
  - Chronic obstructive pulmonary disease [Fatal]
  - Colitis ischaemic [Fatal]
  - Abdominal pain [Fatal]
  - Abdominal rebound tenderness [Fatal]
  - Haematochezia [Fatal]
  - Abdominal tenderness [Fatal]
  - Abdominal rigidity [Fatal]
  - Diarrhoea [Fatal]
  - Fatigue [Fatal]
  - Malaise [Fatal]
  - C-reactive protein increased [Fatal]
  - Blood sodium decreased [Unknown]
  - Enteritis [Unknown]
  - Intestinal perforation [Unknown]
